FAERS Safety Report 18688636 (Version 1)
Quarter: 2020Q4

REPORT INFORMATION
  Report Type: Spontaneous
  Country: US (occurrence: US)
  Receive Date: 20201231
  Receipt Date: 20201231
  Transmission Date: 20210114
  Serious: No
  Sender: FDA-Public Use
  Company Number: None

PATIENT
  Age: 62 Year
  Sex: Male
  Weight: 76.95 kg

DRUGS (18)
  1. AMIODARONE [Concomitant]
     Active Substance: AMIODARONE
  2. DEXAMETHASONE. [Concomitant]
     Active Substance: DEXAMETHASONE
  3. INSULIN LISPRO [Concomitant]
     Active Substance: INSULIN LISPRO
  4. MIDODRINE [Concomitant]
     Active Substance: MIDODRINE
  5. PANTOPRAZOLE [Concomitant]
     Active Substance: PANTOPRAZOLE
  6. APIXABAN [Concomitant]
     Active Substance: APIXABAN
  7. ATORVASTATIN [Concomitant]
     Active Substance: ATORVASTATIN
  8. IPRATROPIUM - ALBUTEROL NEBS [Concomitant]
  9. GABAPENTIN. [Concomitant]
     Active Substance: GABAPENTIN
  10. MELATONIN [Concomitant]
     Active Substance: MELATONIN
     Dates: start: 20201222
  11. DULOXETINE. [Concomitant]
     Active Substance: DULOXETINE
  12. POLYETHYLENE GLYCOL 17 G [Concomitant]
     Dates: start: 20201222
  13. BUPROPION. [Concomitant]
     Active Substance: BUPROPION
  14. INSULIN GLARGINE [Concomitant]
     Active Substance: INSULIN GLARGINE
  15. ACETAMINOPHEN. [Concomitant]
     Active Substance: ACETAMINOPHEN
     Dates: start: 20201222
  16. GUAIFENESIN. [Concomitant]
     Active Substance: GUAIFENESIN
  17. REMDESIVIR. [Suspect]
     Active Substance: REMDESIVIR
     Indication: COVID-19
     Route: 041
     Dates: start: 20201222, end: 20201225
  18. LEVOTHYROXINE. [Concomitant]
     Active Substance: LEVOTHYROXINE

REACTIONS (2)
  - International normalised ratio increased [None]
  - Prothrombin time prolonged [None]

NARRATIVE: CASE EVENT DATE: 20201226
